FAERS Safety Report 9738756 (Version 2)
Quarter: 2013Q4

REPORT INFORMATION
  Report Type: Report from Study
  Country: MX (occurrence: MX)
  Receive Date: 20131209
  Receipt Date: 20131213
  Transmission Date: 20140711
  Serious: Yes (Hospitalization, Other)
  Sender: FDA-Public Use
  Company Number: MX-ROCHE-1312951

PATIENT
  Age: 59 Year
  Sex: Female
  Weight: 50 kg

DRUGS (1)
  1. XELODA [Suspect]
     Indication: COLORECTAL CANCER
     Dosage: FOR 14 DAYS, 7 DAYS REST
     Route: 048
     Dates: start: 201211, end: 201312

REACTIONS (11)
  - Gastrointestinal haemorrhage [Recovered/Resolved]
  - Thrombosis [Recovered/Resolved]
  - Gastric cancer [Not Recovered/Not Resolved]
  - Malnutrition [Recovering/Resolving]
  - Convulsion [Recovered/Resolved]
  - Fear [Unknown]
  - Burns third degree [Recovering/Resolving]
  - Food intolerance [Recovered/Resolved]
  - Wound [Recovered/Resolved]
  - Abdominal pain [Not Recovered/Not Resolved]
  - Weight decreased [Unknown]
